FAERS Safety Report 13366910 (Version 5)
Quarter: 2017Q2

REPORT INFORMATION
  Report Type: Spontaneous
  Country: US (occurrence: US)
  Receive Date: 20170324
  Receipt Date: 20170517
  Transmission Date: 20170830
  Serious: Yes (Other)
  Sender: FDA-Public Use
  Company Number: US-POUND INTERNATIONAL CORPORATION-1064604

PATIENT
  Age: 35 Year
  Sex: Male
  Weight: 101 kg

DRUGS (1)
  1. MALE GENITAL DESENSITIZER STUD 100 [Suspect]
     Active Substance: LIDOCAINE
     Indication: PREMATURE EJACULATION
     Route: 061
     Dates: start: 201509, end: 20160319

REACTIONS (14)
  - Pain [Not Recovered/Not Resolved]
  - Penile size reduced [Not Recovered/Not Resolved]
  - Intentional product misuse [Recovered/Resolved]
  - Erectile dysfunction [Not Recovered/Not Resolved]
  - Blood testosterone decreased [Not Recovered/Not Resolved]
  - Nerve injury [Not Recovered/Not Resolved]
  - Emotional distress [Not Recovered/Not Resolved]
  - Sexual dysfunction [Not Recovered/Not Resolved]
  - Application site hypoaesthesia [Recovering/Resolving]
  - Testicular atrophy [Not Recovered/Not Resolved]
  - Ill-defined disorder [Not Recovered/Not Resolved]
  - Semen volume decreased [Not Recovered/Not Resolved]
  - Application site coldness [Not Recovered/Not Resolved]
  - Testicular pain [Not Recovered/Not Resolved]

NARRATIVE: CASE EVENT DATE: 20160320
